FAERS Safety Report 12407608 (Version 5)
Quarter: 2016Q4

REPORT INFORMATION
  Report Type: Spontaneous
  Country: JP (occurrence: JP)
  Receive Date: 20160526
  Receipt Date: 20161028
  Transmission Date: 20170207
  Serious: Yes (Other)
  Sender: FDA-Public Use
  Company Number: PHJP2016JP013524

PATIENT
  Age: 69 Year
  Sex: Male
  Weight: 57.9 kg

DRUGS (10)
  1. VOTRIENT [Suspect]
     Active Substance: PAZOPANIB HYDROCHLORIDE
     Dosage: 600 MG, QD
     Route: 048
     Dates: start: 20160714, end: 20160721
  2. TAMSULOSIN HYDROCHLORIDE. [Concomitant]
     Active Substance: TAMSULOSIN HYDROCHLORIDE
     Indication: BENIGN PROSTATIC HYPERPLASIA
     Dosage: 0.2 MG, QD
     Route: 048
     Dates: start: 20160520
  3. VOTRIENT [Suspect]
     Active Substance: PAZOPANIB HYDROCHLORIDE
     Indication: RENAL CELL CARCINOMA
     Dosage: 800 MG, QD
     Route: 048
     Dates: start: 20160520, end: 20160530
  4. VOTRIENT [Suspect]
     Active Substance: PAZOPANIB HYDROCHLORIDE
     Dosage: 400 MG, QD
     Route: 048
     Dates: start: 20160804, end: 20160817
  5. ZOLPIDEM [Concomitant]
     Active Substance: ZOLPIDEM\ZOLPIDEM TARTRATE
     Indication: INSOMNIA
     Dosage: 5 MG, QD
     Route: 048
     Dates: start: 20160520
  6. LORAZEPAM. [Concomitant]
     Active Substance: LORAZEPAM
     Indication: VOMITING
     Dosage: 0.5 MG, QD
     Route: 048
     Dates: start: 20160528
  7. FEBURIC [Concomitant]
     Active Substance: FEBUXOSTAT
     Indication: HYPERURICAEMIA
     Dosage: 10 MG, QD
     Route: 048
     Dates: start: 20160520
  8. PROTECADIN [Concomitant]
     Active Substance: LAFUTIDINE
     Indication: GASTROOESOPHAGEAL REFLUX DISEASE
     Dosage: 10 MG, BID
     Route: 048
     Dates: start: 20160520, end: 20160523
  9. VOTRIENT [Suspect]
     Active Substance: PAZOPANIB HYDROCHLORIDE
     Dosage: 200 MG, UNK
     Route: 048
     Dates: start: 20160825
  10. METOCLOPRAMIDE. [Concomitant]
     Active Substance: METOCLOPRAMIDE
     Indication: VOMITING
     Dosage: 5 MG, TID
     Route: 048
     Dates: start: 20160525

REACTIONS (25)
  - Nausea [Recovered/Resolved]
  - Decreased appetite [Recovered/Resolved]
  - Nausea [Recovered/Resolved]
  - Decreased appetite [Recovered/Resolved]
  - Macular hole [Recovering/Resolving]
  - Renal impairment [Recovering/Resolving]
  - Malaise [Recovered/Resolved]
  - Neutrophil count decreased [Recovered/Resolved]
  - Alanine aminotransferase increased [Recovered/Resolved]
  - Platelet count decreased [Recovered/Resolved]
  - Nausea [Recovering/Resolving]
  - Malaise [Recovered/Resolved]
  - Aspartate aminotransferase increased [Recovered/Resolved]
  - Alanine aminotransferase increased [Recovered/Resolved]
  - Alanine aminotransferase increased [Recovered/Resolved]
  - Platelet count decreased [Unknown]
  - White blood cell count decreased [Recovered/Resolved]
  - Blood bilirubin increased [Unknown]
  - Labelled drug-food interaction medication error [Unknown]
  - Malaise [Recovered/Resolved]
  - Vomiting [Recovering/Resolving]
  - Decreased appetite [Recovered/Resolved]
  - Palmar-plantar erythrodysaesthesia syndrome [Recovering/Resolving]
  - White blood cell count decreased [Unknown]
  - Aspartate aminotransferase increased [Recovered/Resolved]

NARRATIVE: CASE EVENT DATE: 20160520
